FAERS Safety Report 23163297 (Version 1)
Quarter: 2023Q4

REPORT INFORMATION
  Report Type: Spontaneous
  Country: US (occurrence: US)
  Receive Date: 20231109
  Receipt Date: 20231109
  Transmission Date: 20240110
  Serious: No
  Sender: FDA-Public Use
  Company Number: US-GSKCCFUS-Case-01847010_AE-103175

PATIENT
  Sex: Male

DRUGS (1)
  1. FLOVENT HFA [Suspect]
     Active Substance: FLUTICASONE PROPIONATE
     Indication: Dysphagia
     Dosage: 220 UG

REACTIONS (3)
  - Incorrect route of product administration [Unknown]
  - Product prescribing issue [Unknown]
  - Product use in unapproved indication [Unknown]
